FAERS Safety Report 11722886 (Version 1)
Quarter: 2015Q4

REPORT INFORMATION
  Report Type: Spontaneous
  Country: US (occurrence: None)
  Receive Date: 20151110
  Receipt Date: 20151110
  Transmission Date: 20160304
  Serious: Yes (Hospitalization, Disabling)
  Sender: FDA-Public Use
  Company Number: None

PATIENT
  Age: 66 Year
  Sex: Female
  Weight: 71.67 kg

DRUGS (9)
  1. CIPROFLOXIN [Suspect]
     Active Substance: CIPROFLOXACIN
     Indication: ANIMAL BITE
     Dosage: PILL
     Route: 048
     Dates: start: 20141012, end: 20141013
  2. SYNTHROID [Concomitant]
     Active Substance: LEVOTHYROXINE SODIUM
  3. MULTIVITAMIN [Concomitant]
     Active Substance: VITAMINS
  4. CIPROFLOXIN [Suspect]
     Active Substance: CIPROFLOXACIN
     Indication: WOUND
     Dosage: PILL
     Route: 048
     Dates: start: 20141012, end: 20141013
  5. PROTONIX [Concomitant]
     Active Substance: PANTOPRAZOLE SODIUM
  6. XANAX [Concomitant]
     Active Substance: ALPRAZOLAM
  7. CARAFATE [Concomitant]
     Active Substance: SUCRALFATE
  8. WALKER SEAT [Concomitant]
     Active Substance: DEVICE
  9. ZANTAC [Concomitant]
     Active Substance: RANITIDINE HYDROCHLORIDE

REACTIONS (21)
  - Abdominal pain upper [None]
  - Seizure [None]
  - Muscular weakness [None]
  - Dysstasia [None]
  - Glossodynia [None]
  - Dysarthria [None]
  - Nervous system disorder [None]
  - Panic attack [None]
  - Anxiety [None]
  - Chest pain [None]
  - Swollen tongue [None]
  - Depression suicidal [None]
  - Cough [None]
  - Rash [None]
  - Stomatitis [None]
  - Dry mouth [None]
  - Paralysis [None]
  - Fatigue [None]
  - ECG signs of myocardial ischaemia [None]
  - Obstructive airways disorder [None]
  - Confusional state [None]

NARRATIVE: CASE EVENT DATE: 20141012
